FAERS Safety Report 4608964-8 (Version None)
Quarter: 2005Q1

REPORT INFORMATION
  Report Type: 
  Country: None (occurrence: None)
  Receive Date: 20050310
  Receipt Date: 20050225
  Transmission Date: 20050727
  Serious: Yes (Death)
  Sender: FDA-Public Use
  Company Number: 2005-BP-02668YA

PATIENT
  Age: 67 Year
  Sex: Male

DRUGS (1)
  1. HARNAL (TAMSULOSIN) (TAMSULOSIN HYDROCHLORIDE) [Suspect]
     Indication: BENIGN PROSTATIC HYPERPLASIA
     Dosage: 0.2 MG (NR) PO
     Route: 048
     Dates: start: 20041108, end: 20041212

REACTIONS (2)
  - CONDITION AGGRAVATED [None]
  - RECTAL CANCER [None]
